FAERS Safety Report 8810082 (Version 7)
Quarter: 2013Q2

REPORT INFORMATION
  Report Type: Report from Study
  Country: US (occurrence: US)
  Receive Date: 20120926
  Receipt Date: 20130506
  Transmission Date: 20140414
  Serious: Yes (Hospitalization)
  Sender: FDA-Public Use
  Company Number: US-PFIZER INC-2012228579

PATIENT
  Age: 55 Year
  Sex: Female

DRUGS (25)
  1. SUNITINIB MALATE [Suspect]
     Indication: METASTATIC RENAL CELL CARCINOMA
     Dosage: 50 MG, 1X/DAY
     Route: 048
     Dates: start: 20120828, end: 20120905
  2. BMS-936558 [Suspect]
     Indication: METASTATIC RENAL CELL CARCINOMA
     Dosage: 398 MG, UNK
     Route: 042
     Dates: start: 20120828, end: 20120828
  3. VITAMIN D [Concomitant]
  4. MULTIVITAMINS AND IRON [Concomitant]
  5. LANSOPRAZOLE [Concomitant]
  6. ONDANSETRON [Concomitant]
  7. PROCHLORPERAZINE [Concomitant]
  8. CRANBERRY [Concomitant]
  9. VANCOMYCIN [Concomitant]
  10. PANTOPRAZOLE [Concomitant]
  11. AZTREONAM [Concomitant]
  12. AZITHROMYCIN [Concomitant]
  13. ACETYLCYSTEINE [Concomitant]
  14. NITROGLYCERIN [Concomitant]
     Route: 060
  15. MORPHINE [Concomitant]
  16. TOBRAMYCIN [Concomitant]
  17. LEVAQUIN [Concomitant]
  18. PREDNISONE [Concomitant]
  19. HEPARIN [Concomitant]
  20. OXYCODONE [Concomitant]
  21. SENNA [Concomitant]
  22. SYNTHROID [Concomitant]
  23. PREVACID [Concomitant]
  24. DEXAMETHASONE [Concomitant]
     Dosage: UNK
     Dates: start: 20121105, end: 20121109
  25. ZOFRAN [Concomitant]
     Dosage: UNK
     Dates: start: 20121105, end: 20121109

REACTIONS (2)
  - Pneumonitis [Recovered/Resolved]
  - Dehydration [Recovered/Resolved]
